FAERS Safety Report 5495845-3 (Version None)
Quarter: 2007Q4

REPORT INFORMATION
  Report Type: 
  Country: None (occurrence: None)
  Receive Date: 20071025
  Receipt Date: 20061101
  Transmission Date: 20080405
  Serious: No
  Sender: FDA-Public Use
  Company Number: A0625826A

PATIENT
  Age: 79 Year
  Sex: Male

DRUGS (4)
  1. ADVAIR DISKUS 100/50 [Suspect]
     Indication: COUGH
     Dosage: 1PUFF TWICE PER DAY
     Route: 055
     Dates: start: 20061018
  2. PREDNISONE [Concomitant]
  3. AZITHROMYCIN [Concomitant]
  4. ZOCOR [Concomitant]

REACTIONS (2)
  - DIZZINESS [None]
  - HEADACHE [None]
